FAERS Safety Report 12548820 (Version 1)
Quarter: 2016Q3

REPORT INFORMATION
  Report Type: Spontaneous
  Country: US (occurrence: US)
  Receive Date: 20160712
  Receipt Date: 20160712
  Transmission Date: 20161109
  Serious: Yes (Other)
  Sender: FDA-Public Use
  Company Number: US-GLAXOSMITHKLINE-US2016GSK098623

PATIENT
  Age: 55 Year
  Sex: Female

DRUGS (1)
  1. TANZEUM [Suspect]
     Active Substance: ALBIGLUTIDE
     Indication: TYPE 2 DIABETES MELLITUS
     Dosage: 50 MG, WE
     Route: 042
     Dates: start: 201508

REACTIONS (6)
  - Incorrect product storage [Unknown]
  - Wrong technique in product usage process [Unknown]
  - Device use error [Unknown]
  - Condition aggravated [Unknown]
  - Back disorder [Unknown]
  - Spinal operation [Unknown]

NARRATIVE: CASE EVENT DATE: 201607
